FAERS Safety Report 6830058-1 (Version None)
Quarter: 2010Q3

REPORT INFORMATION
  Report Type: 
  Country: None (occurrence: None)
  Receive Date: 20100711
  Receipt Date: 20100512
  Transmission Date: 20110219
  Serious: No
  Sender: FDA-Public Use
  Company Number: US-ALLERGAN-1005774US

PATIENT
  Sex: Female

DRUGS (3)
  1. LATISSE [Suspect]
     Indication: GROWTH OF EYELASHES
     Dosage: 1 GTT, QHS
     Route: 061
     Dates: end: 20090401
  2. LATISSE [Suspect]
     Dosage: 1 GTT, 4 TIMES PER WEEK
     Route: 061
  3. EYE DROPS [Concomitant]
     Indication: DRY EYE

REACTIONS (5)
  - ERYTHEMA OF EYELID [None]
  - EYELID IRRITATION [None]
  - INCORRECT DOSE ADMINISTERED [None]
  - SKIN HAEMORRHAGE [None]
  - WRONG TECHNIQUE IN DRUG USAGE PROCESS [None]
